FAERS Safety Report 9735766 (Version 1)
Quarter: 2013Q4

REPORT INFORMATION
  Report Type: Spontaneous
  Country: US (occurrence: US)
  Receive Date: 20131206
  Receipt Date: 20131206
  Transmission Date: 20140711
  Serious: No
  Sender: FDA-Public Use
  Company Number: US-GILEAD-2009-0023051

PATIENT
  Age: 74 Year
  Sex: Female
  Weight: 58.97 kg

DRUGS (9)
  1. LETAIRIS [Suspect]
     Indication: PULMONARY ARTERIAL HYPERTENSION
     Route: 048
     Dates: start: 20090620
  2. COUMADIN [Concomitant]
  3. REVATIO [Concomitant]
  4. COREG [Concomitant]
  5. LOTREL [Concomitant]
  6. DOXEPIN [Concomitant]
  7. METAMUCIL [Concomitant]
  8. PRILOSEC [Concomitant]
  9. MULTIVITAMINS [Concomitant]

REACTIONS (1)
  - Oedema peripheral [Not Recovered/Not Resolved]
